FAERS Safety Report 6203853-X (Version None)
Quarter: 2009Q2

REPORT INFORMATION
  Report Type: 
  Country: None (occurrence: None)
  Receive Date: 20090527
  Receipt Date: 20090514
  Transmission Date: 20091009
  Serious: Yes (Other)
  Sender: FDA-Public Use
  Company Number: US-PFIZER INC-2009216637

PATIENT
  Age: 21 Year
  Sex: Male

DRUGS (3)
  1. GEODON [Suspect]
     Indication: BIPOLAR DISORDER
     Dosage: UNK
     Dates: start: 20090101, end: 20090101
  2. WELLBUTRIN XL [Concomitant]
     Dosage: 300 MG, 1X/DAY
  3. CONCERTA [Concomitant]
     Dosage: UNK

REACTIONS (3)
  - MUSCLE TWITCHING [None]
  - PARAESTHESIA [None]
  - TONIC CLONIC MOVEMENTS [None]
